FAERS Safety Report 16193503 (Version 1)
Quarter: 2019Q2

REPORT INFORMATION
  Report Type: Spontaneous
  Country: GB (occurrence: GB)
  Receive Date: 20190413
  Receipt Date: 20190413
  Transmission Date: 20190711
  Serious: Yes (Other)
  Sender: FDA-Public Use
  Company Number: GB-TEVA-2019-GB-1036176

PATIENT
  Age: 27 Year
  Sex: Male
  Weight: 63 kg

DRUGS (7)
  1. BOOTS IBUPROFEN [Concomitant]
  2. CENTRUM [Concomitant]
     Active Substance: VITAMINS
  3. AMOXICILLIN. [Suspect]
     Active Substance: AMOXICILLIN
     Indication: LYME DISEASE
     Dosage: 3 GRAM DAILY; FOR 1 MONTH
     Route: 048
     Dates: start: 20190304
  4. CELEBREX [Concomitant]
     Active Substance: CELECOXIB
  5. BOOTS PARACETAMOL [Concomitant]
  6. VENTOLIN [Concomitant]
     Active Substance: ALBUTEROL SULFATE
  7. VITAMIN B12 [Concomitant]
     Active Substance: CYANOCOBALAMIN

REACTIONS (1)
  - Palpitations [Not Recovered/Not Resolved]

NARRATIVE: CASE EVENT DATE: 20190306
